FAERS Safety Report 5099853-6 (Version None)
Quarter: 2006Q3

REPORT INFORMATION
  Report Type: 
  Country: None (occurrence: None)
  Receive Date: 20060908
  Receipt Date: 20060818
  Transmission Date: 20061208
  Serious: Yes (Death)
  Sender: FDA-Public Use
  Company Number: HQWYE748421AUG06

PATIENT
  Sex: Male

DRUGS (2)
  1. ENBREL [Suspect]
     Indication: RHEUMATOID ARTHRITIS
     Route: 058
     Dates: start: 20051013, end: 20060801
  2. SULFASALAZINE [Concomitant]
     Dosage: UNKNOWN
     Route: 048

REACTIONS (3)
  - CARDIAC ARREST [None]
  - MALAISE [None]
  - RASH [None]
